FAERS Safety Report 8489517-0 (Version None)
Quarter: 2012Q3

REPORT INFORMATION
  Report Type: 
  Country: None (occurrence: None)
  Receive Date: 20120705
  Receipt Date: 20120625
  Transmission Date: 20120928
  Serious: Yes (Hospitalization)
  Sender: FDA-Public Use
  Company Number: US-ASTRAZENECA-2012SE42704

PATIENT
  Sex: Female

DRUGS (2)
  1. NEXIUM [Suspect]
     Route: 048
  2. NEXIUM [Suspect]
     Indication: GASTROOESOPHAGEAL REFLUX DISEASE
     Route: 048

REACTIONS (7)
  - COUGH [None]
  - STRIDOR [None]
  - BREATHING-RELATED SLEEP DISORDER [None]
  - INTENTIONAL DRUG MISUSE [None]
  - HERNIA [None]
  - ASTHMA [None]
  - DYSPNOEA [None]
